FAERS Safety Report 14244666 (Version 11)
Quarter: 2020Q1

REPORT INFORMATION
  Report Type: Report from Study
  Country: CO (occurrence: CO)
  Receive Date: 20171201
  Receipt Date: 20200121
  Transmission Date: 20200409
  Serious: Yes (Life-Threatening, Hospitalization, Other)
  Sender: FDA-Public Use
  Company Number: PHHY2017CO176754

PATIENT
  Age: 36 Year
  Sex: Male
  Weight: 71 kg

DRUGS (3)
  1. AFINITOR [Suspect]
     Active Substance: EVEROLIMUS
     Indication: GASTROENTEROPANCREATIC NEUROENDOCRINE TUMOUR DISEASE
     Dosage: 10 MG, QD (ONCE DAILY)
     Route: 048
  2. AFINITOR [Suspect]
     Active Substance: EVEROLIMUS
     Indication: NEUROENDOCRINE TUMOUR OF THE LUNG
  3. SANDOSTATIN LAR DEPOT [Suspect]
     Active Substance: OCTREOTIDE ACETATE
     Indication: GASTROENTEROPANCREATIC NEUROENDOCRINE TUMOUR DISEASE
     Dosage: 20 MG, QMO
     Route: 030
     Dates: start: 2016

REACTIONS (33)
  - Platelet count decreased [Unknown]
  - Blood potassium increased [Unknown]
  - Metastases to liver [Unknown]
  - Depressed mood [Unknown]
  - Agitation [Unknown]
  - Blood pressure decreased [Unknown]
  - Abdominal distension [Unknown]
  - Gait inability [Unknown]
  - Cyst [Unknown]
  - Choking [Unknown]
  - Gastroenteropancreatic neuroendocrine tumour disease [Unknown]
  - Mass [Unknown]
  - Swelling [Unknown]
  - Pain [Unknown]
  - Bile duct obstruction [Unknown]
  - Malaise [Unknown]
  - General physical health deterioration [Unknown]
  - Weight decreased [Unknown]
  - Eating disorder [Unknown]
  - Gastritis [Unknown]
  - Hepatic lesion [Unknown]
  - Haemorrhagic cyst [Unknown]
  - Gastrointestinal neoplasm [Unknown]
  - Yellow skin [Recovered/Resolved]
  - Blood sodium decreased [Unknown]
  - Internal haemorrhage [Unknown]
  - Malignant neoplasm progression [Unknown]
  - Irritability [Unknown]
  - Vomiting [Unknown]
  - Blood potassium decreased [Unknown]
  - Cardiac failure [Unknown]
  - Product use in unapproved indication [Unknown]
  - Fatigue [Unknown]

NARRATIVE: CASE EVENT DATE: 201701
